FAERS Safety Report 6551610-7 (Version None)
Quarter: 2010Q1

REPORT INFORMATION
  Report Type: 
  Country: None (occurrence: None)
  Receive Date: 20100120
  Receipt Date: 20100104
  Transmission Date: 20100710
  Serious: Yes (Hospitalization)
  Sender: FDA-Public Use
  Company Number: 2010BM000005

PATIENT
  Age: 17 Year
  Sex: Male
  Weight: 22.8 kg

DRUGS (1)
  1. NAGLAZYME [Suspect]
     Indication: MUCOPOLYSACCHARIDOSIS VI
     Dosage: 4 VIALS; QW; IVDRP
     Route: 041
     Dates: start: 20040709

REACTIONS (1)
  - SPINAL LAMINECTOMY [None]
